FAERS Safety Report 26204270 (Version 1)
Quarter: 2025Q4

REPORT INFORMATION
  Report Type: Spontaneous
  Country: EU (occurrence: EU)
  Receive Date: 20251226
  Receipt Date: 20251226
  Transmission Date: 20260118
  Serious: Yes (Death)
  Sender: OTSUKA
  Company Number: None

PATIENT
  Age: 65 Year
  Sex: Male
  Weight: 83.4 kg

DRUGS (5)
  1. ABILIFY [Suspect]
     Active Substance: ARIPIPRAZOLE
     Indication: Medication error
     Dosage: 30 MG, QD
     Route: 061
     Dates: start: 20250102, end: 20250102
  2. CLOZAPINE [Suspect]
     Active Substance: CLOZAPINE
     Indication: Medication error
     Dosage: 300 MG, QD
     Route: 061
     Dates: start: 20250102, end: 20250102
  3. LOXAPINE [Suspect]
     Active Substance: LOXAPINE
     Indication: Medication error
     Dosage: 100 MG, QD
     Route: 061
     Dates: start: 20250102, end: 20250102
  4. DIAZEPAM [Suspect]
     Active Substance: DIAZEPAM
     Indication: Medication error
     Dosage: 5 MG, QD
     Route: 061
     Dates: start: 20250102, end: 20250102
  5. TROPATEPINE HYDROCHLORIDE [Suspect]
     Active Substance: TROPATEPINE HYDROCHLORIDE
     Indication: Medication error
     Dosage: 10 MG, QD
     Route: 061
     Dates: start: 20250102, end: 20250102

REACTIONS (3)
  - Pneumonia aspiration [Fatal]
  - Product administration error [Fatal]
  - Wrong patient [Fatal]

NARRATIVE: CASE EVENT DATE: 20250102
